FAERS Safety Report 6029794-9 (Version None)
Quarter: 2009Q1

REPORT INFORMATION
  Report Type: 
  Country: None (occurrence: None)
  Receive Date: 20090106
  Receipt Date: 20090106
  Transmission Date: 20090719
  Serious: Yes (Other)
  Sender: FDA-Public Use
  Company Number: None

PATIENT
  Sex: Male
  Weight: 163.2949 kg

DRUGS (1)
  1. ENBREL [Suspect]
     Indication: RHEUMATOID ARTHRITIS
     Dosage: 50MG SQ WEEKLY SQ
     Route: 058
     Dates: start: 20050101

REACTIONS (1)
  - CHRONIC LYMPHOCYTIC LEUKAEMIA [None]
